FAERS Safety Report 6630303-1 (Version None)
Quarter: 2010Q1

REPORT INFORMATION
  Report Type: 
  Country: None (occurrence: None)
  Receive Date: 20100311
  Receipt Date: 20100226
  Transmission Date: 20100710
  Serious: Yes (Other)
  Sender: FDA-Public Use
  Company Number: PHHY2009US58279

PATIENT
  Sex: Male
  Weight: 64.399 kg

DRUGS (2)
  1. AFINITOR [Suspect]
     Dosage: 10 MG, QD
     Route: 048
     Dates: start: 20091130
  2. COUMADIN [Suspect]
     Indication: VENA CAVA THROMBOSIS
     Dosage: 5 MG, QD
     Route: 048

REACTIONS (3)
  - HAEMATURIA [None]
  - RENAL CANCER [None]
  - TRANSFUSION [None]
